FAERS Safety Report 10177116 (Version 1)
Quarter: 2014Q2

REPORT INFORMATION
  Report Type: Spontaneous
  Country: US (occurrence: None)
  Receive Date: 20140515
  Receipt Date: 20140515
  Transmission Date: 20141212
  Serious: No
  Sender: FDA-Public Use
  Company Number: None

PATIENT
  Age: 57 Year
  Sex: Male
  Weight: 84 kg

DRUGS (1)
  1. SANDOSTATIN LAR [Suspect]
     Dates: start: 20140514

REACTIONS (4)
  - Device failure [None]
  - Accidental exposure to product [None]
  - Underdose [None]
  - Syringe issue [None]
